FAERS Safety Report 9612934 (Version 4)
Quarter: 2013Q4

REPORT INFORMATION
  Report Type: Spontaneous
  Country: US (occurrence: US)
  Receive Date: 20131010
  Receipt Date: 20131210
  Transmission Date: 20140711
  Serious: Yes (Hospitalization, Disabling, Other)
  Sender: FDA-Public Use
  Company Number: US-ASTRAZENECA-2013SE73537

PATIENT
  Age: 73 Year
  Sex: Female
  Weight: 43.5 kg

DRUGS (22)
  1. NEXIUM [Suspect]
     Indication: GASTROOESOPHAGEAL REFLUX DISEASE
     Route: 048
     Dates: start: 2003
  2. NEXIUM [Suspect]
     Indication: GASTROOESOPHAGEAL REFLUX DISEASE
     Route: 048
     Dates: start: 2006, end: 20131001
  3. OMEPRAZOLE [Suspect]
     Indication: GASTROOESOPHAGEAL REFLUX DISEASE
     Route: 048
     Dates: start: 2000, end: 2005
  4. TOPICAL LIDOCAINE [Suspect]
     Route: 061
  5. ADVAIR DISKUS IN [Concomitant]
     Indication: DYSPNOEA
     Dosage: 250/50 PRN
     Route: 055
  6. ASTELIN [Concomitant]
     Indication: DYSPNOEA
     Route: 048
  7. ASTELIN [Concomitant]
     Indication: DYSPNOEA
     Route: 045
  8. COMBIVENT [Concomitant]
     Indication: DYSPNOEA
     Dosage: PRN
     Route: 055
  9. SPIRIVA [Concomitant]
     Indication: DYSPNOEA
     Route: 055
  10. SPIRIVA [Concomitant]
     Indication: DYSPNOEA
     Dosage: AS REQUIRED
     Route: 055
  11. ALLEGRA-D [Concomitant]
     Indication: MULTIPLE ALLERGIES
     Dosage: AS REQUIRED
     Route: 048
  12. ALLEGRA-D [Concomitant]
     Indication: MULTIPLE ALLERGIES
     Dosage: 180/240 MG DAILY
     Route: 048
  13. SYNTHROID [Concomitant]
     Indication: THYROID DISORDER
     Dosage: 75 MCG DAILY
     Route: 048
     Dates: start: 1983
  14. PREMARIN [Concomitant]
     Indication: HORMONE REPLACEMENT THERAPY
     Route: 048
  15. PRESERVISION WITH LUTEIN [Concomitant]
     Indication: EYE DISORDER
     Dosage: TWO TIMES A DAY
     Route: 048
  16. EFFEXOR [Concomitant]
     Indication: RELAXATION THERAPY
     Route: 048
  17. VITAMINS [Concomitant]
     Indication: SUPPLEMENTATION THERAPY
     Dosage: DAILY
     Route: 048
  18. FISH OIL-OMEGA-3 FATTY ACIDS [Concomitant]
     Route: 048
  19. PROVERA [Concomitant]
     Route: 048
  20. CYANOCOBALAMIN [Concomitant]
     Route: 048
  21. CALCIUM D3 [Concomitant]
     Dosage: 600-200 MG UNIT TABS
  22. BENELAXINE [Concomitant]
     Indication: RELAXATION THERAPY
     Route: 048

REACTIONS (54)
  - Balance disorder [Unknown]
  - Hyperhidrosis [Unknown]
  - Tremor [Unknown]
  - Contusion [Unknown]
  - Off label use [Unknown]
  - Drug ineffective [Unknown]
  - Leukaemia [Unknown]
  - Myelodysplastic syndrome [Unknown]
  - Fall [Unknown]
  - Jaw fracture [Unknown]
  - Concussion [Unknown]
  - Bone cancer [Unknown]
  - Appendicitis [Unknown]
  - Joint dislocation [Unknown]
  - Upper limb fracture [Unknown]
  - Syncope [Unknown]
  - Bone density decreased [Unknown]
  - Anaemia [Not Recovered/Not Resolved]
  - Weight decreased [Not Recovered/Not Resolved]
  - Mental impairment [Unknown]
  - Hypertension [Unknown]
  - Activities of daily living impaired [Unknown]
  - Muscle spasms [Unknown]
  - Skin discolouration [Unknown]
  - Haemorrhage [Unknown]
  - Impaired healing [Unknown]
  - Aphthous stomatitis [Unknown]
  - Rash [Unknown]
  - Diarrhoea [Unknown]
  - Dry mouth [Unknown]
  - Dizziness [Unknown]
  - Nausea [Unknown]
  - Malaise [Unknown]
  - Malaise [Unknown]
  - Hypertension [Unknown]
  - Endocrine disorder [Unknown]
  - Arthralgia [Unknown]
  - Fatigue [Unknown]
  - Increased tendency to bruise [Unknown]
  - Depression [Unknown]
  - Pain in jaw [Unknown]
  - Decreased appetite [Unknown]
  - Chronic obstructive pulmonary disease [Unknown]
  - Asthma [Unknown]
  - Facial pain [Unknown]
  - Fatigue [Unknown]
  - Pain [Unknown]
  - Tinnitus [Unknown]
  - Blood chromogranin A increased [Unknown]
  - Osteoporosis [Unknown]
  - Migraine [Unknown]
  - Asthenia [Unknown]
  - Blood cortisol increased [Unknown]
  - Palpitations [Unknown]
